FAERS Safety Report 8058678-X (Version None)
Quarter: 2012Q1

REPORT INFORMATION
  Report Type: 
  Country: None (occurrence: None)
  Receive Date: 20120119
  Receipt Date: 20120119
  Transmission Date: 20120608
  Serious: Yes (Hospitalization)
  Sender: FDA-Public Use
  Company Number: None

PATIENT
  Age: 89 Year
  Sex: Female
  Weight: 100 kg

DRUGS (19)
  1. LACTULOSE [Concomitant]
  2. PREPARATION H [Concomitant]
  3. TYLENOL-500 [Concomitant]
  4. CLONIDINE [Concomitant]
  5. VITAMIN B-12 [Concomitant]
  6. ASPIRIN [Suspect]
     Dosage: 325MG DAILY PO CHRONIC
     Route: 048
  7. PRILOSEC [Concomitant]
  8. DICLOFENAC [Concomitant]
  9. DIOVAN [Concomitant]
  10. VIT D3 [Concomitant]
  11. RISPERIDONE [Concomitant]
  12. NOVOLIN 70/30 [Concomitant]
  13. MIRALAX [Concomitant]
  14. NYSTATIN [Concomitant]
  15. COUMADIN [Suspect]
     Indication: ATRIAL FIBRILLATION
     Dosage: 5MG DAILY PO CHRONIC
     Route: 048
  16. VOLTAREN [Concomitant]
  17. CARDIZEM [Concomitant]
  18. METOPROLOL TARTRATE [Concomitant]
  19. ARTIFICIAL TEARS [Concomitant]

REACTIONS (2)
  - GASTROINTESTINAL HAEMORRHAGE [None]
  - HAEMORRHAGIC ANAEMIA [None]
